FAERS Safety Report 4816947-8 (Version None)
Quarter: 2005Q3

REPORT INFORMATION
  Report Type: 
  Country: None (occurrence: None)
  Receive Date: 20050929
  Receipt Date: 20050622
  Transmission Date: 20060218
  Serious: No
  Sender: FDA-Public Use
  Company Number: 05P-163-0303757-00

PATIENT
  Age: 64 Year
  Sex: Female

DRUGS (10)
  1. HUMIRA [Suspect]
     Indication: RHEUMATOID ARTHRITIS
     Dosage: 40 MG, 1 IN 2 WK, SUBCUTANEOUS
     Route: 058
     Dates: start: 20040801
  2. NIFEDIPINE [Concomitant]
  3. ZOCOR [Concomitant]
  4. RELAFIN [Concomitant]
  5. OXAZEPAM [Concomitant]
  6. SERTRALINE HYDROCHLORIDE [Concomitant]
  7. GABAPENTIN [Concomitant]
  8. METHOCARBAMOL [Concomitant]
  9. TRAMADOL HYDROCHLORIDE [Concomitant]
  10. CETIRIZINE HYDROCHLORIDE [Concomitant]

REACTIONS (2)
  - DRY EYE [None]
  - VISION BLURRED [None]
